FAERS Safety Report 13835306 (Version 1)
Quarter: 2017Q3

REPORT INFORMATION
  Report Type: Spontaneous
  Country: US (occurrence: US)
  Receive Date: 20170804
  Receipt Date: 20170804
  Transmission Date: 20171127
  Serious: Yes (Other)
  Sender: FDA-Public Use
  Company Number: US-LUPIN PHARMACEUTICALS INC.-2017-04407

PATIENT
  Age: 27 Year
  Sex: Female
  Weight: 83.9 kg

DRUGS (1)
  1. MIBELAS 24 FE [Suspect]
     Active Substance: ETHINYL ESTRADIOL\NORETHINDRONE ACETATE
     Indication: CONTRACEPTION
     Dosage: 1MG/20MCG, QD
     Route: 048
     Dates: start: 20170501, end: 20170717

REACTIONS (1)
  - Pregnancy on oral contraceptive [Not Recovered/Not Resolved]

NARRATIVE: CASE EVENT DATE: 20170719
